FAERS Safety Report 26048998 (Version 1)
Quarter: 2025Q4

REPORT INFORMATION
  Report Type: Spontaneous
  Country: EU (occurrence: EU)
  Receive Date: 20251115
  Receipt Date: 20251115
  Transmission Date: 20260118
  Serious: Yes (Hospitalization, Other)
  Sender: AUROBINDO
  Company Number: EU-AFSSAPS-AVMP2025000268

PATIENT
  Age: 39 Year
  Sex: Female

DRUGS (3)
  1. TRAMADOL [Suspect]
     Active Substance: TRAMADOL
     Indication: Product used for unknown indication
     Dosage: 1600 MILLIGRAM (8 COMPRIM?S DE LP 200MG PAR JOUR (3 COMPRIM?S ? 14 H ET 5 ? 20H))
     Route: 048
     Dates: start: 2018
  2. CODEINE [Suspect]
     Active Substance: CODEINE
     Indication: Product used for unknown indication
     Dosage: 300 MILLIGRAM (6 COMPRIM?S DE 50 MG PAR JOUR)
     Route: 048
     Dates: start: 2018
  3. TIANEPTINE [Suspect]
     Active Substance: TIANEPTINE
     Indication: Product used for unknown indication
     Dosage: 15 DOSAGE FORM, ONCE A DAY (JUSQU^? 15 COMPRIM?S EN UNE PRISE LE SOIR)
     Route: 048
     Dates: start: 2006

REACTIONS (3)
  - Drug use disorder [Recovering/Resolving]
  - Overdose [Recovering/Resolving]
  - Pharmaceutical nomadism [Recovering/Resolving]

NARRATIVE: CASE EVENT DATE: 20050101
